FAERS Safety Report 25866264 (Version 1)
Quarter: 2025Q3

REPORT INFORMATION
  Report Type: Spontaneous
  Country: CA (occurrence: CA)
  Receive Date: 20250930
  Receipt Date: 20250930
  Transmission Date: 20251021
  Serious: Yes (Congenital Anomaly)
  Sender: MYLAN
  Company Number: CA-MYLANLABS-2025M1082277

PATIENT

DRUGS (340)
  1. CELEBREX [Suspect]
     Active Substance: CELECOXIB
     Indication: Foetal exposure during pregnancy
  2. CELEBREX [Suspect]
     Active Substance: CELECOXIB
  3. CELEBREX [Suspect]
     Active Substance: CELECOXIB
     Route: 064
  4. CELEBREX [Suspect]
     Active Substance: CELECOXIB
     Route: 064
  5. CELEBREX [Suspect]
     Active Substance: CELECOXIB
  6. CELEBREX [Suspect]
     Active Substance: CELECOXIB
  7. CELEBREX [Suspect]
     Active Substance: CELECOXIB
     Route: 064
  8. CELEBREX [Suspect]
     Active Substance: CELECOXIB
     Route: 064
  9. ASCORBIC ACID [Suspect]
     Active Substance: ASCORBIC ACID
     Indication: Foetal exposure during pregnancy
  10. ASCORBIC ACID [Suspect]
     Active Substance: ASCORBIC ACID
     Route: 065
  11. ASCORBIC ACID [Suspect]
     Active Substance: ASCORBIC ACID
     Route: 065
  12. ASCORBIC ACID [Suspect]
     Active Substance: ASCORBIC ACID
  13. ACETAMINOPHEN [Suspect]
     Active Substance: ACETAMINOPHEN
     Indication: Foetal exposure during pregnancy
  14. ACETAMINOPHEN [Suspect]
     Active Substance: ACETAMINOPHEN
     Route: 064
  15. ACETAMINOPHEN [Suspect]
     Active Substance: ACETAMINOPHEN
     Route: 064
  16. ACETAMINOPHEN [Suspect]
     Active Substance: ACETAMINOPHEN
  17. ACETAMINOPHEN AND CODEINE [Suspect]
     Active Substance: ACETAMINOPHEN\CODEINE PHOSPHATE
     Indication: Foetal exposure during pregnancy
  18. ACETAMINOPHEN AND CODEINE [Suspect]
     Active Substance: ACETAMINOPHEN\CODEINE PHOSPHATE
     Route: 064
  19. ACETAMINOPHEN AND CODEINE [Suspect]
     Active Substance: ACETAMINOPHEN\CODEINE PHOSPHATE
     Route: 064
  20. ACETAMINOPHEN AND CODEINE [Suspect]
     Active Substance: ACETAMINOPHEN\CODEINE PHOSPHATE
  21. ACTEMRA [Suspect]
     Active Substance: TOCILIZUMAB
     Indication: Foetal exposure during pregnancy
  22. ACTEMRA [Suspect]
     Active Substance: TOCILIZUMAB
     Route: 064
  23. ACTEMRA [Suspect]
     Active Substance: TOCILIZUMAB
     Route: 064
  24. ACTEMRA [Suspect]
     Active Substance: TOCILIZUMAB
  25. ADALIMUMAB [Suspect]
     Active Substance: ADALIMUMAB
     Indication: Foetal exposure during pregnancy
  26. ADALIMUMAB [Suspect]
     Active Substance: ADALIMUMAB
     Route: 064
  27. ADALIMUMAB [Suspect]
     Active Substance: ADALIMUMAB
     Route: 064
  28. ADALIMUMAB [Suspect]
     Active Substance: ADALIMUMAB
  29. AIMOVIG [Suspect]
     Active Substance: ERENUMAB-AOOE
     Indication: Foetal exposure during pregnancy
  30. AIMOVIG [Suspect]
     Active Substance: ERENUMAB-AOOE
     Route: 064
  31. AIMOVIG [Suspect]
     Active Substance: ERENUMAB-AOOE
     Route: 064
  32. AIMOVIG [Suspect]
     Active Substance: ERENUMAB-AOOE
  33. ALENDRONATE SODIUM [Suspect]
     Active Substance: ALENDRONATE SODIUM
     Indication: Foetal exposure during pregnancy
  34. ALENDRONATE SODIUM [Suspect]
     Active Substance: ALENDRONATE SODIUM
     Route: 064
  35. ALENDRONATE SODIUM [Suspect]
     Active Substance: ALENDRONATE SODIUM
     Route: 064
  36. ALENDRONATE SODIUM [Suspect]
     Active Substance: ALENDRONATE SODIUM
  37. ALENDRONIC ACID [Suspect]
     Active Substance: ALENDRONIC ACID
     Indication: Foetal exposure during pregnancy
  38. ALENDRONIC ACID [Suspect]
     Active Substance: ALENDRONIC ACID
     Route: 064
  39. ALENDRONIC ACID [Suspect]
     Active Substance: ALENDRONIC ACID
     Route: 064
  40. ALENDRONIC ACID [Suspect]
     Active Substance: ALENDRONIC ACID
  41. LEFLUNOMIDE [Suspect]
     Active Substance: LEFLUNOMIDE
     Indication: Foetal exposure during pregnancy
  42. LEFLUNOMIDE [Suspect]
     Active Substance: LEFLUNOMIDE
     Route: 064
  43. LEFLUNOMIDE [Suspect]
     Active Substance: LEFLUNOMIDE
     Route: 064
  44. LEFLUNOMIDE [Suspect]
     Active Substance: LEFLUNOMIDE
  45. PREDNISONE [Suspect]
     Active Substance: PREDNISONE
     Indication: Foetal exposure during pregnancy
  46. PREDNISONE [Suspect]
     Active Substance: PREDNISONE
     Route: 064
  47. PREDNISONE [Suspect]
     Active Substance: PREDNISONE
     Route: 064
  48. PREDNISONE [Suspect]
     Active Substance: PREDNISONE
  49. ARAVA [Suspect]
     Active Substance: LEFLUNOMIDE
     Indication: Foetal exposure during pregnancy
  50. ARAVA [Suspect]
     Active Substance: LEFLUNOMIDE
     Route: 064
  51. ARAVA [Suspect]
     Active Substance: LEFLUNOMIDE
     Route: 064
  52. ARAVA [Suspect]
     Active Substance: LEFLUNOMIDE
  53. ATOMOXETINE [Suspect]
     Active Substance: ATOMOXETINE
     Indication: Foetal exposure during pregnancy
  54. ATOMOXETINE [Suspect]
     Active Substance: ATOMOXETINE
     Route: 064
  55. ATOMOXETINE [Suspect]
     Active Substance: ATOMOXETINE
     Route: 064
  56. ATOMOXETINE [Suspect]
     Active Substance: ATOMOXETINE
  57. AZATHIOPRINE [Suspect]
     Active Substance: AZATHIOPRINE
     Indication: Foetal exposure during pregnancy
  58. AZATHIOPRINE [Suspect]
     Active Substance: AZATHIOPRINE
     Route: 064
  59. AZATHIOPRINE [Suspect]
     Active Substance: AZATHIOPRINE
     Route: 064
  60. AZATHIOPRINE [Suspect]
     Active Substance: AZATHIOPRINE
  61. BERINERT [Suspect]
     Active Substance: HUMAN C1-ESTERASE INHIBITOR
     Indication: Foetal exposure during pregnancy
  62. BERINERT [Suspect]
     Active Substance: HUMAN C1-ESTERASE INHIBITOR
     Route: 064
  63. BERINERT [Suspect]
     Active Substance: HUMAN C1-ESTERASE INHIBITOR
     Route: 064
  64. BERINERT [Suspect]
     Active Substance: HUMAN C1-ESTERASE INHIBITOR
  65. BOTULINUM TOXIN TYPE A [Suspect]
     Active Substance: BOTULINUM TOXIN TYPE A
     Indication: Foetal exposure during pregnancy
  66. BOTULINUM TOXIN TYPE A [Suspect]
     Active Substance: BOTULINUM TOXIN TYPE A
     Route: 064
  67. BOTULINUM TOXIN TYPE A [Suspect]
     Active Substance: BOTULINUM TOXIN TYPE A
     Route: 064
  68. BOTULINUM TOXIN TYPE A [Suspect]
     Active Substance: BOTULINUM TOXIN TYPE A
  69. BUTRANS [Suspect]
     Active Substance: BUPRENORPHINE
     Indication: Foetal exposure during pregnancy
  70. BUTRANS [Suspect]
     Active Substance: BUPRENORPHINE
     Route: 064
  71. BUTRANS [Suspect]
     Active Substance: BUPRENORPHINE
     Route: 064
  72. BUTRANS [Suspect]
     Active Substance: BUPRENORPHINE
  73. CALCIUM ASCORBATE [Suspect]
     Active Substance: CALCIUM ASCORBATE
     Indication: Foetal exposure during pregnancy
  74. CALCIUM ASCORBATE [Suspect]
     Active Substance: CALCIUM ASCORBATE
     Route: 064
  75. CALCIUM ASCORBATE [Suspect]
     Active Substance: CALCIUM ASCORBATE
     Route: 064
  76. CALCIUM ASCORBATE [Suspect]
     Active Substance: CALCIUM ASCORBATE
  77. CALCIUM CITRATE [Suspect]
     Active Substance: CALCIUM CITRATE
     Indication: Foetal exposure during pregnancy
  78. CALCIUM CITRATE [Suspect]
     Active Substance: CALCIUM CITRATE
     Route: 064
  79. CALCIUM CITRATE [Suspect]
     Active Substance: CALCIUM CITRATE
     Route: 064
  80. CALCIUM CITRATE [Suspect]
     Active Substance: CALCIUM CITRATE
  81. CALCIUM GLUBIONATE [Suspect]
     Active Substance: CALCIUM GLUBIONATE
     Indication: Foetal exposure during pregnancy
  82. CALCIUM GLUBIONATE [Suspect]
     Active Substance: CALCIUM GLUBIONATE
     Route: 064
  83. CALCIUM GLUBIONATE [Suspect]
     Active Substance: CALCIUM GLUBIONATE
     Route: 064
  84. CALCIUM GLUBIONATE [Suspect]
     Active Substance: CALCIUM GLUBIONATE
  85. CANDESARTAN [Suspect]
     Active Substance: CANDESARTAN
     Indication: Foetal exposure during pregnancy
  86. CANDESARTAN [Suspect]
     Active Substance: CANDESARTAN
     Route: 064
  87. CANDESARTAN [Suspect]
     Active Substance: CANDESARTAN
     Route: 064
  88. CANDESARTAN [Suspect]
     Active Substance: CANDESARTAN
  89. CETIRIZINE [Suspect]
     Active Substance: CETIRIZINE HYDROCHLORIDE
     Indication: Foetal exposure during pregnancy
  90. CETIRIZINE [Suspect]
     Active Substance: CETIRIZINE HYDROCHLORIDE
     Route: 064
  91. CETIRIZINE [Suspect]
     Active Substance: CETIRIZINE HYDROCHLORIDE
     Route: 064
  92. CETIRIZINE [Suspect]
     Active Substance: CETIRIZINE HYDROCHLORIDE
  93. CHLORHEXIDINE GLUCONATE [Suspect]
     Active Substance: CHLORHEXIDINE GLUCONATE
     Indication: Foetal exposure during pregnancy
  94. CHLORHEXIDINE GLUCONATE [Suspect]
     Active Substance: CHLORHEXIDINE GLUCONATE
     Route: 064
  95. CHLORHEXIDINE GLUCONATE [Suspect]
     Active Substance: CHLORHEXIDINE GLUCONATE
     Route: 064
  96. CHLORHEXIDINE GLUCONATE [Suspect]
     Active Substance: CHLORHEXIDINE GLUCONATE
  97. CHOLECALCIFEROL [Suspect]
     Active Substance: CHOLECALCIFEROL
     Indication: Foetal exposure during pregnancy
  98. CHOLECALCIFEROL [Suspect]
     Active Substance: CHOLECALCIFEROL
     Route: 064
  99. CHOLECALCIFEROL [Suspect]
     Active Substance: CHOLECALCIFEROL
     Route: 064
  100. CHOLECALCIFEROL [Suspect]
     Active Substance: CHOLECALCIFEROL
  101. CIMZIA [Suspect]
     Active Substance: CERTOLIZUMAB PEGOL
     Indication: Foetal exposure during pregnancy
  102. CIMZIA [Suspect]
     Active Substance: CERTOLIZUMAB PEGOL
     Route: 064
  103. CIMZIA [Suspect]
     Active Substance: CERTOLIZUMAB PEGOL
     Route: 064
  104. CIMZIA [Suspect]
     Active Substance: CERTOLIZUMAB PEGOL
  105. CORTISONE ACETATE [Suspect]
     Active Substance: CORTISONE ACETATE
     Indication: Foetal exposure during pregnancy
  106. CORTISONE ACETATE [Suspect]
     Active Substance: CORTISONE ACETATE
     Route: 064
  107. CORTISONE ACETATE [Suspect]
     Active Substance: CORTISONE ACETATE
     Route: 064
  108. CORTISONE ACETATE [Suspect]
     Active Substance: CORTISONE ACETATE
  109. COSENTYX [Suspect]
     Active Substance: SECUKINUMAB
     Indication: Foetal exposure during pregnancy
  110. COSENTYX [Suspect]
     Active Substance: SECUKINUMAB
  111. COSENTYX [Suspect]
     Active Substance: SECUKINUMAB
     Route: 064
  112. COSENTYX [Suspect]
     Active Substance: SECUKINUMAB
     Route: 064
  113. COSENTYX [Suspect]
     Active Substance: SECUKINUMAB
  114. COSENTYX [Suspect]
     Active Substance: SECUKINUMAB
  115. COSENTYX [Suspect]
     Active Substance: SECUKINUMAB
     Route: 065
  116. COSENTYX [Suspect]
     Active Substance: SECUKINUMAB
     Route: 065
  117. DESOXIMETASONE [Suspect]
     Active Substance: DESOXIMETASONE
     Indication: Foetal exposure during pregnancy
  118. DESOXIMETASONE [Suspect]
     Active Substance: DESOXIMETASONE
     Route: 064
  119. DESOXIMETASONE [Suspect]
     Active Substance: DESOXIMETASONE
     Route: 064
  120. DESOXIMETASONE [Suspect]
     Active Substance: DESOXIMETASONE
  121. DICLOFENAC [Suspect]
     Active Substance: DICLOFENAC
     Indication: Foetal exposure during pregnancy
  122. DICLOFENAC [Suspect]
     Active Substance: DICLOFENAC
     Route: 064
  123. DICLOFENAC [Suspect]
     Active Substance: DICLOFENAC
     Route: 064
  124. DICLOFENAC [Suspect]
     Active Substance: DICLOFENAC
  125. DICLOFENAC POTASSIUM [Suspect]
     Active Substance: DICLOFENAC POTASSIUM
     Indication: Foetal exposure during pregnancy
  126. DICLOFENAC POTASSIUM [Suspect]
     Active Substance: DICLOFENAC POTASSIUM
     Route: 064
  127. DICLOFENAC POTASSIUM [Suspect]
     Active Substance: DICLOFENAC POTASSIUM
     Route: 064
  128. DICLOFENAC POTASSIUM [Suspect]
     Active Substance: DICLOFENAC POTASSIUM
  129. DICLOFENAC SODIUM [Suspect]
     Active Substance: DICLOFENAC SODIUM
     Indication: Foetal exposure during pregnancy
  130. DICLOFENAC SODIUM [Suspect]
     Active Substance: DICLOFENAC SODIUM
     Route: 064
  131. DICLOFENAC SODIUM [Suspect]
     Active Substance: DICLOFENAC SODIUM
     Route: 064
  132. DICLOFENAC SODIUM [Suspect]
     Active Substance: DICLOFENAC SODIUM
  133. DOMPERIDONE MALEATE [Suspect]
     Active Substance: DOMPERIDONE MALEATE
     Indication: Foetal exposure during pregnancy
  134. DOMPERIDONE MALEATE [Suspect]
     Active Substance: DOMPERIDONE MALEATE
     Route: 064
  135. DOMPERIDONE MALEATE [Suspect]
     Active Substance: DOMPERIDONE MALEATE
     Route: 064
  136. DOMPERIDONE MALEATE [Suspect]
     Active Substance: DOMPERIDONE MALEATE
  137. ENBREL [Suspect]
     Active Substance: ETANERCEPT
     Indication: Foetal exposure during pregnancy
     Dosage: 50 MILLIGRAM, QW (1 EVERY 1 WEEK)
  138. ENBREL [Suspect]
     Active Substance: ETANERCEPT
     Dosage: 50 MILLIGRAM, QW (1 EVERY 1 WEEK)
  139. ENBREL [Suspect]
     Active Substance: ETANERCEPT
     Dosage: 50 MILLIGRAM, QW (1 EVERY 1 WEEK)
     Route: 064
  140. ENBREL [Suspect]
     Active Substance: ETANERCEPT
     Dosage: 50 MILLIGRAM, QW (1 EVERY 1 WEEK)
     Route: 064
  141. ENBREL [Suspect]
     Active Substance: ETANERCEPT
  142. ENBREL [Suspect]
     Active Substance: ETANERCEPT
  143. ENBREL [Suspect]
     Active Substance: ETANERCEPT
     Route: 065
  144. ENBREL [Suspect]
     Active Substance: ETANERCEPT
     Route: 065
  145. ERGOCALCIFEROL [Suspect]
     Active Substance: ERGOCALCIFEROL
     Indication: Foetal exposure during pregnancy
  146. ERGOCALCIFEROL [Suspect]
     Active Substance: ERGOCALCIFEROL
     Route: 064
  147. ERGOCALCIFEROL [Suspect]
     Active Substance: ERGOCALCIFEROL
     Route: 064
  148. ERGOCALCIFEROL [Suspect]
     Active Substance: ERGOCALCIFEROL
  149. FLUMETHASONE [Suspect]
     Active Substance: FLUMETHASONE
     Indication: Foetal exposure during pregnancy
  150. FLUMETHASONE [Suspect]
     Active Substance: FLUMETHASONE
     Route: 064
  151. FLUMETHASONE [Suspect]
     Active Substance: FLUMETHASONE
     Route: 064
  152. FLUMETHASONE [Suspect]
     Active Substance: FLUMETHASONE
  153. FLUMETHASONE PIVALATE [Suspect]
     Active Substance: FLUMETHASONE PIVALATE
     Indication: Foetal exposure during pregnancy
  154. FLUMETHASONE PIVALATE [Suspect]
     Active Substance: FLUMETHASONE PIVALATE
     Route: 064
  155. FLUMETHASONE PIVALATE [Suspect]
     Active Substance: FLUMETHASONE PIVALATE
     Route: 064
  156. FLUMETHASONE PIVALATE [Suspect]
     Active Substance: FLUMETHASONE PIVALATE
  157. FOLIC ACID [Suspect]
     Active Substance: FOLIC ACID
     Indication: Foetal exposure during pregnancy
  158. FOLIC ACID [Suspect]
     Active Substance: FOLIC ACID
     Route: 064
  159. FOLIC ACID [Suspect]
     Active Substance: FOLIC ACID
     Route: 064
  160. FOLIC ACID [Suspect]
     Active Substance: FOLIC ACID
  161. FOSAMAX [Suspect]
     Active Substance: ALENDRONATE SODIUM
     Indication: Foetal exposure during pregnancy
  162. FOSAMAX [Suspect]
     Active Substance: ALENDRONATE SODIUM
     Route: 064
  163. FOSAMAX [Suspect]
     Active Substance: ALENDRONATE SODIUM
     Route: 064
  164. FOSAMAX [Suspect]
     Active Substance: ALENDRONATE SODIUM
  165. HAIR KERATIN AMINO ACIDS GOLD COMPLEX [Suspect]
     Active Substance: HAIR KERATIN AMINO ACIDS GOLD COMPLEX
     Indication: Foetal exposure during pregnancy
  166. HAIR KERATIN AMINO ACIDS GOLD COMPLEX [Suspect]
     Active Substance: HAIR KERATIN AMINO ACIDS GOLD COMPLEX
     Route: 064
  167. HAIR KERATIN AMINO ACIDS GOLD COMPLEX [Suspect]
     Active Substance: HAIR KERATIN AMINO ACIDS GOLD COMPLEX
     Route: 064
  168. HAIR KERATIN AMINO ACIDS GOLD COMPLEX [Suspect]
     Active Substance: HAIR KERATIN AMINO ACIDS GOLD COMPLEX
  169. GOLD SODIUM THIOMALATE [Suspect]
     Active Substance: GOLD SODIUM THIOMALATE
     Indication: Foetal exposure during pregnancy
  170. GOLD SODIUM THIOMALATE [Suspect]
     Active Substance: GOLD SODIUM THIOMALATE
     Route: 064
  171. GOLD SODIUM THIOMALATE [Suspect]
     Active Substance: GOLD SODIUM THIOMALATE
     Route: 064
  172. GOLD SODIUM THIOMALATE [Suspect]
     Active Substance: GOLD SODIUM THIOMALATE
  173. HUMIRA [Suspect]
     Active Substance: ADALIMUMAB
     Indication: Foetal exposure during pregnancy
  174. HUMIRA [Suspect]
     Active Substance: ADALIMUMAB
     Route: 064
  175. HUMIRA [Suspect]
     Active Substance: ADALIMUMAB
     Route: 064
  176. HUMIRA [Suspect]
     Active Substance: ADALIMUMAB
  177. HYDROCORTISONE [Suspect]
     Active Substance: HYDROCORTISONE
     Indication: Foetal exposure during pregnancy
  178. HYDROCORTISONE [Suspect]
     Active Substance: HYDROCORTISONE
     Route: 064
  179. HYDROCORTISONE [Suspect]
     Active Substance: HYDROCORTISONE
     Route: 064
  180. HYDROCORTISONE [Suspect]
     Active Substance: HYDROCORTISONE
  181. HYDROCORTISONE PROBUTATE [Suspect]
     Active Substance: HYDROCORTISONE PROBUTATE
     Indication: Foetal exposure during pregnancy
  182. HYDROCORTISONE PROBUTATE [Suspect]
     Active Substance: HYDROCORTISONE PROBUTATE
     Route: 064
  183. HYDROCORTISONE PROBUTATE [Suspect]
     Active Substance: HYDROCORTISONE PROBUTATE
     Route: 064
  184. HYDROCORTISONE PROBUTATE [Suspect]
     Active Substance: HYDROCORTISONE PROBUTATE
  185. HYDROXYCHLOROQUINE [Suspect]
     Active Substance: HYDROXYCHLOROQUINE
     Indication: Foetal exposure during pregnancy
  186. HYDROXYCHLOROQUINE [Suspect]
     Active Substance: HYDROXYCHLOROQUINE
     Route: 064
  187. HYDROXYCHLOROQUINE [Suspect]
     Active Substance: HYDROXYCHLOROQUINE
     Route: 064
  188. HYDROXYCHLOROQUINE [Suspect]
     Active Substance: HYDROXYCHLOROQUINE
  189. HYDROXYCHLOROQUINE SULFATE [Suspect]
     Active Substance: HYDROXYCHLOROQUINE SULFATE
     Indication: Foetal exposure during pregnancy
  190. HYDROXYCHLOROQUINE SULFATE [Suspect]
     Active Substance: HYDROXYCHLOROQUINE SULFATE
     Route: 064
  191. HYDROXYCHLOROQUINE SULFATE [Suspect]
     Active Substance: HYDROXYCHLOROQUINE SULFATE
     Route: 064
  192. HYDROXYCHLOROQUINE SULFATE [Suspect]
     Active Substance: HYDROXYCHLOROQUINE SULFATE
  193. INFLIXIMAB [Suspect]
     Active Substance: INFLIXIMAB
     Indication: Foetal exposure during pregnancy
  194. INFLIXIMAB [Suspect]
     Active Substance: INFLIXIMAB
     Route: 064
  195. INFLIXIMAB [Suspect]
     Active Substance: INFLIXIMAB
     Route: 064
  196. INFLIXIMAB [Suspect]
     Active Substance: INFLIXIMAB
  197. INFLIXIMAB [Suspect]
     Active Substance: INFLIXIMAB
     Indication: Foetal exposure during pregnancy
  198. INFLIXIMAB [Suspect]
     Active Substance: INFLIXIMAB
     Route: 064
  199. INFLIXIMAB [Suspect]
     Active Substance: INFLIXIMAB
     Route: 064
  200. INFLIXIMAB [Suspect]
     Active Substance: INFLIXIMAB
  201. ISOPROPYL ALCOHOL [Suspect]
     Active Substance: ISOPROPYL ALCOHOL
     Indication: Foetal exposure during pregnancy
  202. ISOPROPYL ALCOHOL [Suspect]
     Active Substance: ISOPROPYL ALCOHOL
     Route: 064
  203. ISOPROPYL ALCOHOL [Suspect]
     Active Substance: ISOPROPYL ALCOHOL
     Route: 064
  204. ISOPROPYL ALCOHOL [Suspect]
     Active Substance: ISOPROPYL ALCOHOL
  205. LAMICTAL [Suspect]
     Active Substance: LAMOTRIGINE
     Indication: Foetal exposure during pregnancy
  206. LAMICTAL [Suspect]
     Active Substance: LAMOTRIGINE
     Route: 064
  207. LAMICTAL [Suspect]
     Active Substance: LAMOTRIGINE
     Route: 064
  208. LAMICTAL [Suspect]
     Active Substance: LAMOTRIGINE
  209. LEFLUNOMIDE [Suspect]
     Active Substance: LEFLUNOMIDE
     Indication: Foetal exposure during pregnancy
  210. LEFLUNOMIDE [Suspect]
     Active Substance: LEFLUNOMIDE
     Route: 064
  211. LEFLUNOMIDE [Suspect]
     Active Substance: LEFLUNOMIDE
     Route: 064
  212. LEFLUNOMIDE [Suspect]
     Active Substance: LEFLUNOMIDE
  213. MAGNESIUM CITRATE [Suspect]
     Active Substance: MAGNESIUM CITRATE
     Indication: Foetal exposure during pregnancy
  214. MAGNESIUM CITRATE [Suspect]
     Active Substance: MAGNESIUM CITRATE
     Route: 064
  215. MAGNESIUM CITRATE [Suspect]
     Active Substance: MAGNESIUM CITRATE
     Route: 064
  216. MAGNESIUM CITRATE [Suspect]
     Active Substance: MAGNESIUM CITRATE
  217. METFORMIN HYDROCHLORIDE [Suspect]
     Active Substance: METFORMIN HYDROCHLORIDE
     Indication: Foetal exposure during pregnancy
  218. METFORMIN HYDROCHLORIDE [Suspect]
     Active Substance: METFORMIN HYDROCHLORIDE
     Route: 064
  219. METFORMIN HYDROCHLORIDE [Suspect]
     Active Substance: METFORMIN HYDROCHLORIDE
     Route: 064
  220. METFORMIN HYDROCHLORIDE [Suspect]
     Active Substance: METFORMIN HYDROCHLORIDE
  221. METHOTREXATE [Suspect]
     Active Substance: METHOTREXATE
     Indication: Foetal exposure during pregnancy
  222. METHOTREXATE [Suspect]
     Active Substance: METHOTREXATE
     Route: 064
  223. METHOTREXATE [Suspect]
     Active Substance: METHOTREXATE
     Route: 064
  224. METHOTREXATE [Suspect]
     Active Substance: METHOTREXATE
  225. METHYLPREDNISOLONE [Suspect]
     Active Substance: METHYLPREDNISOLONE
     Indication: Foetal exposure during pregnancy
  226. METHYLPREDNISOLONE [Suspect]
     Active Substance: METHYLPREDNISOLONE
     Route: 064
  227. METHYLPREDNISOLONE [Suspect]
     Active Substance: METHYLPREDNISOLONE
     Route: 064
  228. METHYLPREDNISOLONE [Suspect]
     Active Substance: METHYLPREDNISOLONE
  229. METHYLPREDNISOLONE SODIUM SUCCINATE [Suspect]
     Active Substance: METHYLPREDNISOLONE SODIUM SUCCINATE
     Indication: Foetal exposure during pregnancy
  230. METHYLPREDNISOLONE SODIUM SUCCINATE [Suspect]
     Active Substance: METHYLPREDNISOLONE SODIUM SUCCINATE
     Route: 064
  231. METHYLPREDNISOLONE SODIUM SUCCINATE [Suspect]
     Active Substance: METHYLPREDNISOLONE SODIUM SUCCINATE
     Route: 064
  232. METHYLPREDNISOLONE SODIUM SUCCINATE [Suspect]
     Active Substance: METHYLPREDNISOLONE SODIUM SUCCINATE
  233. MINOCYCLINE [Suspect]
     Active Substance: MINOCYCLINE HYDROCHLORIDE
     Indication: Foetal exposure during pregnancy
  234. MINOCYCLINE [Suspect]
     Active Substance: MINOCYCLINE HYDROCHLORIDE
     Route: 064
  235. MINOCYCLINE [Suspect]
     Active Substance: MINOCYCLINE HYDROCHLORIDE
     Route: 064
  236. MINOCYCLINE [Suspect]
     Active Substance: MINOCYCLINE HYDROCHLORIDE
  237. MINOCYCLINE HYDROCHLORIDE [Suspect]
     Active Substance: MINOCYCLINE HYDROCHLORIDE
     Indication: Foetal exposure during pregnancy
  238. MINOCYCLINE HYDROCHLORIDE [Suspect]
     Active Substance: MINOCYCLINE HYDROCHLORIDE
     Route: 064
  239. MINOCYCLINE HYDROCHLORIDE [Suspect]
     Active Substance: MINOCYCLINE HYDROCHLORIDE
     Route: 064
  240. MINOCYCLINE HYDROCHLORIDE [Suspect]
     Active Substance: MINOCYCLINE HYDROCHLORIDE
  241. MYOCHRYSINE [Suspect]
     Active Substance: GOLD SODIUM THIOMALATE
     Indication: Foetal exposure during pregnancy
  242. MYOCHRYSINE [Suspect]
     Active Substance: GOLD SODIUM THIOMALATE
     Route: 064
  243. MYOCHRYSINE [Suspect]
     Active Substance: GOLD SODIUM THIOMALATE
     Route: 064
  244. MYOCHRYSINE [Suspect]
     Active Substance: GOLD SODIUM THIOMALATE
  245. MYRBETRIQ [Suspect]
     Active Substance: MIRABEGRON
     Indication: Foetal exposure during pregnancy
  246. MYRBETRIQ [Suspect]
     Active Substance: MIRABEGRON
     Route: 064
  247. MYRBETRIQ [Suspect]
     Active Substance: MIRABEGRON
     Route: 064
  248. MYRBETRIQ [Suspect]
     Active Substance: MIRABEGRON
  249. NAPROXEN [Suspect]
     Active Substance: NAPROXEN
     Indication: Foetal exposure during pregnancy
  250. NAPROXEN [Suspect]
     Active Substance: NAPROXEN
     Route: 064
  251. NAPROXEN [Suspect]
     Active Substance: NAPROXEN
     Route: 064
  252. NAPROXEN [Suspect]
     Active Substance: NAPROXEN
  253. NAPROXEN SODIUM [Suspect]
     Active Substance: NAPROXEN SODIUM
     Indication: Foetal exposure during pregnancy
  254. NAPROXEN SODIUM [Suspect]
     Active Substance: NAPROXEN SODIUM
     Route: 064
  255. NAPROXEN SODIUM [Suspect]
     Active Substance: NAPROXEN SODIUM
     Route: 064
  256. NAPROXEN SODIUM [Suspect]
     Active Substance: NAPROXEN SODIUM
  257. NICOTINAMIDE [Suspect]
     Active Substance: NIACINAMIDE
     Indication: Foetal exposure during pregnancy
  258. NICOTINAMIDE [Suspect]
     Active Substance: NIACINAMIDE
     Route: 064
  259. NICOTINAMIDE [Suspect]
     Active Substance: NIACINAMIDE
     Route: 064
  260. NICOTINAMIDE [Suspect]
     Active Substance: NIACINAMIDE
  261. NUCALA [Suspect]
     Active Substance: MEPOLIZUMAB
     Indication: Foetal exposure during pregnancy
  262. NUCALA [Suspect]
     Active Substance: MEPOLIZUMAB
     Route: 064
  263. NUCALA [Suspect]
     Active Substance: MEPOLIZUMAB
     Route: 064
  264. NUCALA [Suspect]
     Active Substance: MEPOLIZUMAB
  265. ORENCIA [Suspect]
     Active Substance: ABATACEPT
     Indication: Foetal exposure during pregnancy
  266. ORENCIA [Suspect]
     Active Substance: ABATACEPT
     Route: 064
  267. ORENCIA [Suspect]
     Active Substance: ABATACEPT
     Route: 064
  268. ORENCIA [Suspect]
     Active Substance: ABATACEPT
  269. OXYCODONE [Suspect]
     Active Substance: OXYCODONE
     Indication: Foetal exposure during pregnancy
  270. OXYCODONE [Suspect]
     Active Substance: OXYCODONE
     Route: 064
  271. OXYCODONE [Suspect]
     Active Substance: OXYCODONE
     Route: 064
  272. OXYCODONE [Suspect]
     Active Substance: OXYCODONE
  273. OXYCODONE TEREPHTHALATE [Suspect]
     Active Substance: OXYCODONE TEREPHTHALATE
     Indication: Foetal exposure during pregnancy
  274. OXYCODONE TEREPHTHALATE [Suspect]
     Active Substance: OXYCODONE TEREPHTHALATE
     Route: 064
  275. OXYCODONE TEREPHTHALATE [Suspect]
     Active Substance: OXYCODONE TEREPHTHALATE
     Route: 064
  276. OXYCODONE TEREPHTHALATE [Suspect]
     Active Substance: OXYCODONE TEREPHTHALATE
  277. PERIOGARD [Suspect]
     Active Substance: CHLORHEXIDINE GLUCONATE
     Indication: Foetal exposure during pregnancy
  278. PERIOGARD [Suspect]
     Active Substance: CHLORHEXIDINE GLUCONATE
     Route: 064
  279. PERIOGARD [Suspect]
     Active Substance: CHLORHEXIDINE GLUCONATE
     Route: 064
  280. PERIOGARD [Suspect]
     Active Substance: CHLORHEXIDINE GLUCONATE
  281. PHENYLEPHRINE HYDROCHLORIDE [Suspect]
     Active Substance: PHENYLEPHRINE HYDROCHLORIDE
     Indication: Foetal exposure during pregnancy
  282. PHENYLEPHRINE HYDROCHLORIDE [Suspect]
     Active Substance: PHENYLEPHRINE HYDROCHLORIDE
     Route: 064
  283. PHENYLEPHRINE HYDROCHLORIDE [Suspect]
     Active Substance: PHENYLEPHRINE HYDROCHLORIDE
     Route: 064
  284. PHENYLEPHRINE HYDROCHLORIDE [Suspect]
     Active Substance: PHENYLEPHRINE HYDROCHLORIDE
  285. PHTHALYLSULFATHIAZOLE [Suspect]
     Active Substance: PHTHALYLSULFATHIAZOLE
     Indication: Foetal exposure during pregnancy
  286. PHTHALYLSULFATHIAZOLE [Suspect]
     Active Substance: PHTHALYLSULFATHIAZOLE
     Route: 064
  287. PHTHALYLSULFATHIAZOLE [Suspect]
     Active Substance: PHTHALYLSULFATHIAZOLE
     Route: 064
  288. PHTHALYLSULFATHIAZOLE [Suspect]
     Active Substance: PHTHALYLSULFATHIAZOLE
  289. PREDNISONE [Suspect]
     Active Substance: PREDNISONE
     Indication: Foetal exposure during pregnancy
  290. PREDNISONE [Suspect]
     Active Substance: PREDNISONE
     Route: 064
  291. PREDNISONE [Suspect]
     Active Substance: PREDNISONE
     Route: 064
  292. PREDNISONE [Suspect]
     Active Substance: PREDNISONE
  293. PSEUDOEPHEDRINE [Suspect]
     Active Substance: PSEUDOEPHEDRINE
     Indication: Foetal exposure during pregnancy
  294. PSEUDOEPHEDRINE [Suspect]
     Active Substance: PSEUDOEPHEDRINE
     Route: 064
  295. PSEUDOEPHEDRINE [Suspect]
     Active Substance: PSEUDOEPHEDRINE
     Route: 064
  296. PSEUDOEPHEDRINE [Suspect]
     Active Substance: PSEUDOEPHEDRINE
  297. RAMIPRIL [Suspect]
     Active Substance: RAMIPRIL
     Indication: Foetal exposure during pregnancy
  298. RAMIPRIL [Suspect]
     Active Substance: RAMIPRIL
     Route: 064
  299. RAMIPRIL [Suspect]
     Active Substance: RAMIPRIL
     Route: 064
  300. RAMIPRIL [Suspect]
     Active Substance: RAMIPRIL
  301. CETIRIZINE HYDROCHLORIDE\PSEUDOEPHEDRINE HYDROCHLORIDE [Suspect]
     Active Substance: CETIRIZINE HYDROCHLORIDE\PSEUDOEPHEDRINE HYDROCHLORIDE
     Indication: Foetal exposure during pregnancy
  302. CETIRIZINE HYDROCHLORIDE\PSEUDOEPHEDRINE HYDROCHLORIDE [Suspect]
     Active Substance: CETIRIZINE HYDROCHLORIDE\PSEUDOEPHEDRINE HYDROCHLORIDE
     Route: 064
  303. CETIRIZINE HYDROCHLORIDE\PSEUDOEPHEDRINE HYDROCHLORIDE [Suspect]
     Active Substance: CETIRIZINE HYDROCHLORIDE\PSEUDOEPHEDRINE HYDROCHLORIDE
     Route: 064
  304. CETIRIZINE HYDROCHLORIDE\PSEUDOEPHEDRINE HYDROCHLORIDE [Suspect]
     Active Substance: CETIRIZINE HYDROCHLORIDE\PSEUDOEPHEDRINE HYDROCHLORIDE
  305. SIMPONI [Suspect]
     Active Substance: GOLIMUMAB
     Indication: Foetal exposure during pregnancy
  306. SIMPONI [Suspect]
     Active Substance: GOLIMUMAB
     Route: 064
  307. SIMPONI [Suspect]
     Active Substance: GOLIMUMAB
     Route: 064
  308. SIMPONI [Suspect]
     Active Substance: GOLIMUMAB
  309. STELARA [Suspect]
     Active Substance: USTEKINUMAB
     Indication: Foetal exposure during pregnancy
  310. STELARA [Suspect]
     Active Substance: USTEKINUMAB
     Route: 064
  311. STELARA [Suspect]
     Active Substance: USTEKINUMAB
     Route: 064
  312. STELARA [Suspect]
     Active Substance: USTEKINUMAB
  313. SULFASALAZINE [Suspect]
     Active Substance: SULFASALAZINE
     Indication: Foetal exposure during pregnancy
  314. SULFASALAZINE [Suspect]
     Active Substance: SULFASALAZINE
     Route: 064
  315. SULFASALAZINE [Suspect]
     Active Substance: SULFASALAZINE
     Route: 064
  316. SULFASALAZINE [Suspect]
     Active Substance: SULFASALAZINE
  317. TOPIRAMATE [Suspect]
     Active Substance: TOPIRAMATE
     Indication: Foetal exposure during pregnancy
  318. TOPIRAMATE [Suspect]
     Active Substance: TOPIRAMATE
     Route: 064
  319. TOPIRAMATE [Suspect]
     Active Substance: TOPIRAMATE
     Route: 064
  320. TOPIRAMATE [Suspect]
     Active Substance: TOPIRAMATE
  321. TRUXIMA [Suspect]
     Active Substance: RITUXIMAB-ABBS
     Indication: Foetal exposure during pregnancy
  322. TRUXIMA [Suspect]
     Active Substance: RITUXIMAB-ABBS
  323. TRUXIMA [Suspect]
     Active Substance: RITUXIMAB-ABBS
     Route: 064
  324. TRUXIMA [Suspect]
     Active Substance: RITUXIMAB-ABBS
     Route: 064
  325. TRUXIMA [Suspect]
     Active Substance: RITUXIMAB-ABBS
  326. TRUXIMA [Suspect]
     Active Substance: RITUXIMAB-ABBS
  327. TRUXIMA [Suspect]
     Active Substance: RITUXIMAB-ABBS
     Route: 064
  328. TRUXIMA [Suspect]
     Active Substance: RITUXIMAB-ABBS
     Route: 064
  329. TRUXIMA [Suspect]
     Active Substance: RITUXIMAB-ABBS
  330. TRUXIMA [Suspect]
     Active Substance: RITUXIMAB-ABBS
     Route: 064
  331. TRUXIMA [Suspect]
     Active Substance: RITUXIMAB-ABBS
  332. TRUXIMA [Suspect]
     Active Substance: RITUXIMAB-ABBS
     Route: 064
  333. TRUXIMA [Suspect]
     Active Substance: RITUXIMAB-ABBS
     Indication: Foetal exposure during pregnancy
  334. TRUXIMA [Suspect]
     Active Substance: RITUXIMAB-ABBS
     Route: 064
  335. TRUXIMA [Suspect]
     Active Substance: RITUXIMAB-ABBS
     Route: 064
  336. TRUXIMA [Suspect]
     Active Substance: RITUXIMAB-ABBS
  337. XELJANZ [Suspect]
     Active Substance: TOFACITINIB CITRATE
     Indication: Foetal exposure during pregnancy
  338. XELJANZ [Suspect]
     Active Substance: TOFACITINIB CITRATE
     Route: 064
  339. XELJANZ [Suspect]
     Active Substance: TOFACITINIB CITRATE
     Route: 064
  340. XELJANZ [Suspect]
     Active Substance: TOFACITINIB CITRATE

REACTIONS (2)
  - Congenital anomaly [Unknown]
  - Foetal exposure during pregnancy [Unknown]
